FAERS Safety Report 9394873 (Version 2)
Quarter: 2013Q3

REPORT INFORMATION
  Report Type: Spontaneous
  Country: US (occurrence: US)
  Receive Date: 20130711
  Receipt Date: 20130806
  Transmission Date: 20140515
  Serious: Yes (Other)
  Sender: FDA-Public Use
  Company Number: US-PFIZER INC-2013202926

PATIENT
  Age: 71 Year
  Sex: Female
  Weight: 81.1 kg

DRUGS (14)
  1. CELEBREX [Suspect]
     Indication: PAIN IN EXTREMITY
     Dosage: 200 MG, 1X/DAY
     Route: 048
  2. CELEBREX [Suspect]
     Indication: RHEUMATOID ARTHRITIS
  3. CARVEDILOL [Concomitant]
     Dosage: 6.25 MG, 2X/DAY
     Route: 048
  4. PLAVIX [Concomitant]
     Dosage: 75 MG, 1X/DAY
     Route: 048
  5. OXYBUTYNIN [Concomitant]
     Dosage: 5 MG, 2X/DAY
     Route: 048
  6. LORATADINE [Concomitant]
     Indication: HYPERSENSITIVITY
     Dosage: 10 MG, UNK
  7. BABY ASPIRIN [Concomitant]
     Dosage: UNK, 1X/DAY
  8. FOLTX [Concomitant]
     Dosage: 2/2.5/25 MG, 1X/DAY
     Route: 048
  9. VESICARE [Concomitant]
     Dosage: UNK
  10. METFORMIN [Concomitant]
     Dosage: 1000 MG (2 TABLETS OF 500MG), 2X/DAY
     Route: 048
  11. CENTRUM SILVER [Concomitant]
     Dosage: UNK, 1X/DAY
     Route: 048
  12. CALCIUM [Concomitant]
     Dosage: UNK, 2X/DAY
  13. AMLODIPINE/BENAZEPRIL [Concomitant]
     Dosage: 5/20 MG, 1X/DAY
     Route: 048
  14. SIMVASTATIN [Concomitant]
     Dosage: 40 MG, 1X/DAY
     Route: 048

REACTIONS (1)
  - Back disorder [Recovered/Resolved]
